FAERS Safety Report 5345672-2 (Version None)
Quarter: 2007Q2

REPORT INFORMATION
  Report Type: 
  Country: None (occurrence: None)
  Receive Date: 20070605
  Receipt Date: 20070524
  Transmission Date: 20071010
  Serious: Yes (Hospitalization)
  Sender: FDA-Public Use
  Company Number: IT-NOVOPROD-263956

PATIENT
  Age: 79 Year
  Sex: Female

DRUGS (2)
  1. NOVONORM [Suspect]
     Indication: DIABETES MELLITUS NON-INSULIN-DEPENDENT
     Dates: start: 20070506, end: 20070511
  2. SIVASTIN [Concomitant]
     Dosage: 20 MG, UNK
     Dates: start: 20070430, end: 20070514

REACTIONS (2)
  - CATHETER RELATED INFECTION [None]
  - HEPATITIS [None]
